FAERS Safety Report 20779149 (Version 2)
Quarter: 2022Q2

REPORT INFORMATION
  Report Type: Spontaneous
  Country: US (occurrence: US)
  Receive Date: 20220503
  Receipt Date: 20220505
  Transmission Date: 20220721
  Serious: Yes (Other)
  Sender: FDA-Public Use
  Company Number: US-PFIZER INC-202200113961

PATIENT
  Age: 54 Year
  Sex: Female

DRUGS (19)
  1. XELJANZ XR [Suspect]
     Active Substance: TOFACITINIB CITRATE
     Dosage: 11 MG
     Route: 048
     Dates: start: 20210701
  2. ALBUTEROL SULFATE [Concomitant]
     Active Substance: ALBUTEROL SULFATE
     Dosage: UNK
  3. BREO ELLIPTA [Concomitant]
     Active Substance: FLUTICASONE FUROATE\VILANTEROL TRIFENATATE
     Dosage: UNK
  4. CYMBALTA [Concomitant]
     Active Substance: DULOXETINE HYDROCHLORIDE
  5. CELEBREX [Concomitant]
     Active Substance: CELECOXIB
  6. ARAVA [Concomitant]
     Active Substance: LEFLUNOMIDE
     Dosage: UNK
  7. ASPIRIN [Concomitant]
     Active Substance: ASPIRIN
     Dosage: UNK
  8. PREDNISONE [Concomitant]
     Active Substance: PREDNISONE
  9. OXYMETAZOLINE HYDROCHLORIDE [Concomitant]
     Active Substance: OXYMETAZOLINE HYDROCHLORIDE
  10. MECLIZINE HYDROCHLORIDE [Concomitant]
     Active Substance: MECLIZINE HYDROCHLORIDE
  11. LASIX [Concomitant]
     Active Substance: FUROSEMIDE
  12. VITAMIN D3 [Concomitant]
     Active Substance: CHOLECALCIFEROL
  13. PANTOPRAZOLE [Concomitant]
     Active Substance: PANTOPRAZOLE
  14. MELATONIN [Concomitant]
     Active Substance: MELATONIN
  15. OXYCODONE [Concomitant]
     Active Substance: OXYCODONE
  16. CYCLOBENZAPRINE HYDROCHLORIDE [Concomitant]
     Active Substance: CYCLOBENZAPRINE HYDROCHLORIDE
  17. FIORICET [Concomitant]
     Active Substance: ACETAMINOPHEN\BUTALBITAL\CAFFEINE
  18. PROMETHAZINE HYDROCHLORIDE [Concomitant]
     Active Substance: PROMETHAZINE HYDROCHLORIDE
  19. SINGULAIR [Concomitant]
     Active Substance: MONTELUKAST SODIUM
     Dosage: UNK

REACTIONS (6)
  - Psoriatic arthropathy [Unknown]
  - Pharyngitis streptococcal [Unknown]
  - Chronic obstructive pulmonary disease [Unknown]
  - Pain [Unknown]
  - Influenza [Unknown]
  - Stress [Unknown]

NARRATIVE: CASE EVENT DATE: 20220401
